FAERS Safety Report 9677877 (Version 1)
Quarter: 2013Q4

REPORT INFORMATION
  Report Type: Spontaneous
  Country: US (occurrence: None)
  Receive Date: 20131107
  Receipt Date: 20131107
  Transmission Date: 20140711
  Serious: Yes (Other)
  Sender: FDA-Public Use
  Company Number: None

PATIENT
  Age: 49 Year
  Sex: Male
  Weight: 152.86 kg

DRUGS (10)
  1. PREGABALIN [Suspect]
     Indication: NEURALGIA
     Route: 048
     Dates: start: 20130621, end: 20131028
  2. ALBUTEROL-IPRATROPIUM (COMBIVENT) [Concomitant]
  3. CARVEDILOL (COREG) [Concomitant]
  4. DULOXETINE (CYMBALTA) [Concomitant]
  5. HYDROXYZINE (ATARAX) [Concomitant]
  6. METFORMIN (GLUCOPHAGE) [Concomitant]
  7. POTASSIUM CHLORIDE (MICRO-K) [Concomitant]
  8. TIOTROPIUM (SPIRIVA WITH HANDIHALER) [Concomitant]
  9. TORSEMIDE (DEMADEX) [Concomitant]
  10. MONTELUKAST (SINGULAIR) [Concomitant]

REACTIONS (4)
  - Weight increased [None]
  - Oedema peripheral [None]
  - Dyspnoea [None]
  - Fatigue [None]
